FAERS Safety Report 9656325 (Version 1)
Quarter: 2013Q4

REPORT INFORMATION
  Report Type: Spontaneous
  Country: US (occurrence: US)
  Receive Date: 20131030
  Receipt Date: 20131030
  Transmission Date: 20140711
  Serious: No
  Sender: FDA-Public Use
  Company Number: US-PFIZER INC-2013309589

PATIENT
  Age: 67 Year
  Sex: Male
  Weight: 88.44 kg

DRUGS (8)
  1. LYRICA [Suspect]
     Indication: BACK PAIN
     Dosage: 25 MG, 2X/DAY
     Dates: start: 201309
  2. LYRICA [Suspect]
     Dosage: 50 MG, 2X/DAY
  3. LYRICA [Suspect]
     Dosage: 100 MG, 2X/DAY
  4. LYRICA [Suspect]
     Dosage: 150 MG, 2X/DAY
  5. LYRICA [Suspect]
     Dosage: 200 MG, 2X/DAY
  6. LYRICA [Suspect]
     Dosage: 100 MG, 2X/DAY
  7. LYRICA [Suspect]
     Dosage: UNK,2X/DAY
     Dates: end: 201310
  8. VIAGRA [Suspect]
     Indication: ERECTILE DYSFUNCTION
     Dosage: 100 MG, AS NEEDED
     Dates: start: 2013

REACTIONS (3)
  - Drug ineffective [Recovered/Resolved]
  - Sexual dysfunction [Unknown]
  - Therapeutic response unexpected [Unknown]
